FAERS Safety Report 14675279 (Version 2)
Quarter: 2018Q2

REPORT INFORMATION
  Report Type: Spontaneous
  Country: IL (occurrence: IL)
  Receive Date: 20180323
  Receipt Date: 20180403
  Transmission Date: 20180711
  Serious: Yes (Hospitalization)
  Sender: FDA-Public Use
  Company Number: IL-FERRINGPH-2018FE01270

PATIENT

DRUGS (1)
  1. PICO-SALAX [Suspect]
     Active Substance: ANHYDROUS CITRIC ACID\MAGNESIUM OXIDE\SODIUM PICOSULFATE
     Indication: BOWEL PREPARATION
     Dosage: 2 DF WERE ADMINISTERED
     Route: 065

REACTIONS (8)
  - Arrhythmia [Unknown]
  - Hyponatraemia [Recovered/Resolved]
  - Metabolic acidosis [Recovered/Resolved]
  - Tachycardia [Unknown]
  - Coma [Recovered/Resolved]
  - Treatment noncompliance [Unknown]
  - Hypokalaemia [Recovered/Resolved]
  - Brain oedema [Unknown]

NARRATIVE: CASE EVENT DATE: 20180305
